FAERS Safety Report 5147708-0 (Version None)
Quarter: 2006Q4

REPORT INFORMATION
  Report Type: 
  Country: None (occurrence: None)
  Receive Date: 20061110
  Receipt Date: 20061031
  Transmission Date: 20070319
  Serious: Yes (Hospitalization)
  Sender: FDA-Public Use
  Company Number: FR-JNJFOC-20061006203

PATIENT
  Age: 48 Year
  Sex: Male

DRUGS (18)
  1. OFLOCET [Suspect]
     Indication: LUNG DISORDER
     Route: 048
     Dates: start: 20060823, end: 20060913
  2. RISPERDAL CONSTA [Suspect]
     Route: 030
  3. RISPERDAL CONSTA [Suspect]
     Indication: SCHIZOPHRENIA
     Route: 030
  4. CLOPIXOL [Suspect]
     Indication: MANIA
     Route: 030
     Dates: start: 20060804, end: 20060804
  5. TERCIAN [Suspect]
     Indication: SLEEP DISORDER
     Route: 065
  6. TERCIAN [Suspect]
     Indication: AGITATION
     Route: 065
  7. TERALITHE [Suspect]
     Indication: SCHIZOPHRENIA
     Route: 048
  8. RIVOTRIL [Concomitant]
     Route: 048
  9. RIVOTRIL [Concomitant]
     Indication: AGITATION
     Route: 048
  10. LEPTICUR [Concomitant]
     Route: 030
  11. LEPTICUR [Concomitant]
     Indication: SCHIZOPHRENIA
     Route: 030
  12. VITAMIN B1 AND B6 [Concomitant]
     Route: 065
  13. VITAMIN B1 AND B6 [Concomitant]
     Route: 065
  14. SULFARLEM [Concomitant]
     Route: 065
  15. SULFARLEM [Concomitant]
     Route: 065
  16. TIBERAL [Concomitant]
     Route: 065
  17. CEFTRAIXONE [Concomitant]
     Route: 065
  18. AMOXICILLIN + CLAVULANATE POTASSIUM [Concomitant]
     Route: 065
     Dates: start: 20060820

REACTIONS (1)
  - CEREBELLAR SYNDROME [None]
